FAERS Safety Report 19997672 (Version 4)
Quarter: 2022Q2

REPORT INFORMATION
  Report Type: Report from Study
  Country: CA (occurrence: CA)
  Receive Date: 20211026
  Receipt Date: 20220614
  Transmission Date: 20220721
  Serious: Yes (Other)
  Sender: FDA-Public Use
  Company Number: CA-BIOGEN-2017BI00371271

PATIENT
  Age: 66 Year
  Sex: Female

DRUGS (4)
  1. DALFAMPRIDINE [Suspect]
     Active Substance: DALFAMPRIDINE
     Indication: Gait disturbance
     Route: 048
     Dates: start: 20170308, end: 20170308
  2. DALFAMPRIDINE [Suspect]
     Active Substance: DALFAMPRIDINE
     Route: 048
  3. DALFAMPRIDINE [Suspect]
     Active Substance: DALFAMPRIDINE
     Route: 048
     Dates: start: 20170309, end: 20170309
  4. DALFAMPRIDINE [Suspect]
     Active Substance: DALFAMPRIDINE
     Route: 048
     Dates: start: 20170308, end: 20170308

REACTIONS (14)
  - Cerebrovascular accident [Unknown]
  - Intracranial aneurysm [Unknown]
  - Therapy non-responder [Recovered/Resolved]
  - Amnesia [Unknown]
  - Muscular weakness [Unknown]
  - Peroneal nerve palsy [Unknown]
  - Visual field defect [Unknown]
  - Pain in extremity [Unknown]
  - Limb injury [Unknown]
  - Heart rate increased [Unknown]
  - Balance disorder [Recovered/Resolved]
  - Fatigue [Unknown]
  - Headache [Unknown]
  - Dizziness [Recovered/Resolved]

NARRATIVE: CASE EVENT DATE: 20170308
